FAERS Safety Report 5702887-9 (Version None)
Quarter: 2008Q2

REPORT INFORMATION
  Report Type: 
  Country: None (occurrence: None)
  Receive Date: 20080411
  Receipt Date: 20080402
  Transmission Date: 20081010
  Serious: Yes (Disabling)
  Sender: FDA-Public Use
  Company Number: JP-MERCK-0803USA00847

PATIENT
  Age: 60 Year
  Sex: Male

DRUGS (5)
  1. PRIMAXIN [Suspect]
     Indication: INFECTIVE SPONDYLITIS
     Route: 041
     Dates: start: 20080228, end: 20080303
  2. HALOSPOR [Concomitant]
     Indication: INFECTIVE SPONDYLITIS
     Route: 051
     Dates: start: 20080225, end: 20080227
  3. LOXONIN [Concomitant]
     Indication: INFECTIVE SPONDYLITIS
     Route: 048
     Dates: start: 20080217, end: 20080301
  4. NEUROTROPIN [Concomitant]
     Indication: INFECTIVE SPONDYLITIS
     Route: 048
     Dates: start: 20080217, end: 20080301
  5. MUCOSTA [Concomitant]
     Indication: INFECTIVE SPONDYLITIS
     Route: 048
     Dates: start: 20080217, end: 20080301

REACTIONS (3)
  - DRUG EFFECT DECREASED [None]
  - FEELING ABNORMAL [None]
  - HYPOAESTHESIA [None]
